FAERS Safety Report 9137790 (Version 1)
Quarter: 2013Q1

REPORT INFORMATION
  Report Type: Report from Study
  Country: CA (occurrence: CA)
  Receive Date: 20130304
  Receipt Date: 20130304
  Transmission Date: 20140127
  Serious: Yes (Other)
  Sender: FDA-Public Use
  Company Number: CA-BAYER-2013-023051

PATIENT
  Age: 18 Year
  Sex: Female
  Weight: 58.97 kg

DRUGS (2)
  1. MIRENA [Suspect]
     Indication: CONTRACEPTION
     Dosage: 20 ?G/D, CONT
     Route: 015
     Dates: start: 20110621, end: 20130212
  2. MIRENA [Suspect]
     Indication: MENORRHAGIA

REACTIONS (11)
  - Dyspareunia [None]
  - Menorrhagia [None]
  - Abdominal tenderness [None]
  - Device expulsion [None]
  - Device issue [None]
  - Procedural pain [None]
  - Device difficult to use [None]
  - Abdominal pain [None]
  - Genital haemorrhage [None]
  - Discomfort [None]
  - Complication of device removal [None]
